FAERS Safety Report 8233664-5 (Version None)
Quarter: 2012Q1

REPORT INFORMATION
  Report Type: 
  Country: None (occurrence: None)
  Receive Date: 20120326
  Receipt Date: 20120320
  Transmission Date: 20120608
  Serious: Yes (Death, Other)
  Sender: FDA-Public Use
  Company Number: PHHY2012CH023900

PATIENT
  Sex: Male
  Weight: 78.8 kg

DRUGS (17)
  1. RASILEZ [Suspect]
     Dates: start: 20110101
  2. CRESTOR [Concomitant]
  3. GLIMEPIRIDE [Concomitant]
  4. FINASTERIDE [Concomitant]
  5. TOVIAZ [Concomitant]
  6. ASPIRIN [Concomitant]
  7. FUROSEMIDE [Concomitant]
  8. OMEPRAZOLE [Concomitant]
     Dosage: UNK
  9. FUNGOTOX [Concomitant]
  10. COLOSAN MITE [Concomitant]
  11. CO-DAFALGAN [Concomitant]
  12. LANTUS [Concomitant]
  13. METFORMIN HCL [Concomitant]
  14. TASSULOSIN [Concomitant]
  15. ZOLPIDEM [Concomitant]
  16. ANGIOTENSIN II ANTAGONISTS [Concomitant]
  17. VALSARTAN/HYDROCHLOORTHIAZIDE [Concomitant]

REACTIONS (7)
  - CORONARY ARTERY DISEASE [None]
  - ELECTROCARDIOGRAM QRS COMPLEX ABNORMAL [None]
  - BLOOD PRESSURE DECREASED [None]
  - IN-STENT CORONARY ARTERY RESTENOSIS [None]
  - CARDIAC ARREST [None]
  - VENTRICULAR TACHYCARDIA [None]
  - CORONARY ARTERY THROMBOSIS [None]
